FAERS Safety Report 20035984 (Version 2)
Quarter: 2022Q1

REPORT INFORMATION
  Report Type: Spontaneous
  Country: US (occurrence: US)
  Receive Date: 20211105
  Receipt Date: 20220101
  Transmission Date: 20220423
  Serious: Yes (Disabling, Other)
  Sender: FDA-Public Use
  Company Number: US-JNJFOC-20211050579

PATIENT
  Age: 40 Year
  Sex: Female
  Weight: 59.020 kg

DRUGS (8)
  1. INVEGA SUSTENNA [Suspect]
     Active Substance: PALIPERIDONE PALMITATE
     Indication: Bipolar disorder
     Dosage: FIRST DOSE
     Route: 030
     Dates: start: 20210826
  2. INVEGA SUSTENNA [Suspect]
     Active Substance: PALIPERIDONE PALMITATE
     Dosage: SECOND DOSE
     Route: 030
     Dates: start: 20210829
  3. INVEGA SUSTENNA [Suspect]
     Active Substance: PALIPERIDONE PALMITATE
  4. LITHIUM [Concomitant]
     Active Substance: LITHIUM
     Indication: Bipolar disorder
  5. SYNTHROID [Concomitant]
     Active Substance: LEVOTHYROXINE SODIUM
     Indication: Hypothyroidism
  6. LUNESTA [Concomitant]
     Active Substance: ESZOPICLONE
     Indication: Insomnia
  7. MELATONIN [Concomitant]
     Active Substance: MELATONIN
     Indication: Insomnia
  8. QUETIAPINE [Concomitant]
     Active Substance: QUETIAPINE
     Indication: Bipolar disorder
     Dosage: QHS

REACTIONS (8)
  - Disability [Recovering/Resolving]
  - Parkinson^s disease [Recovering/Resolving]
  - Nausea [Recovering/Resolving]
  - Loss of personal independence in daily activities [Recovering/Resolving]
  - Weight increased [Recovering/Resolving]
  - Off label use [Unknown]
  - Product use in unapproved indication [Unknown]
  - Inappropriate schedule of product administration [Unknown]

NARRATIVE: CASE EVENT DATE: 20210826
